FAERS Safety Report 12908647 (Version 2)
Quarter: 2016Q4

REPORT INFORMATION
  Report Type: Report from Study
  Country: US (occurrence: US)
  Receive Date: 20161103
  Receipt Date: 20161103
  Transmission Date: 20170207
  Serious: Yes (Disabling)
  Sender: FDA-Public Use
  Company Number: US-SA-2016SA040936

PATIENT
  Age: 43 Year
  Sex: Male

DRUGS (2)
  1. LEMTRADA [Suspect]
     Active Substance: ALEMTUZUMAB
     Indication: MULTIPLE SCLEROSIS
     Route: 041
     Dates: start: 20160119, end: 20160122
  2. LEMTRADA [Suspect]
     Active Substance: ALEMTUZUMAB
     Indication: MULTIPLE SCLEROSIS
     Route: 041
     Dates: start: 20160125, end: 20160125

REACTIONS (5)
  - Musculoskeletal disorder [Not Recovered/Not Resolved]
  - Ill-defined disorder [Unknown]
  - Abdominal pain [Unknown]
  - Muscular weakness [Not Recovered/Not Resolved]
  - Abdominal mass [Unknown]

NARRATIVE: CASE EVENT DATE: 2016
